FAERS Safety Report 9850866 (Version 2)
Quarter: 2014Q1

REPORT INFORMATION
  Report Type: Spontaneous
  Country: US (occurrence: US)
  Receive Date: 20140128
  Receipt Date: 20140312
  Transmission Date: 20141002
  Serious: Yes (Other)
  Sender: FDA-Public Use
  Company Number: US-PFIZER INC-2014024657

PATIENT
  Age: 64 Year
  Sex: Male
  Weight: 94.33 kg

DRUGS (8)
  1. LYRICA [Suspect]
     Indication: TRIGEMINAL NEURALGIA
     Dosage: 1200 MG, 1X/DAY
     Dates: start: 200202
  2. LYRICA [Suspect]
     Dosage: 900 MG, 1X/DAY
  3. LYRICA [Suspect]
     Dosage: UNK
  4. ALENDRONATE SODIUM [Concomitant]
     Indication: OSTEOPOROSIS
     Dosage: 35 MG, WEEKLY
  5. CARBATROL [Concomitant]
     Indication: TRIGEMINAL NEURALGIA
     Dosage: 1800 MG, 1X/DAY
     Dates: start: 2002
  6. CARBATROL [Concomitant]
     Dosage: 600 MG, 1X/DAY
  7. LIPITOR [Concomitant]
     Indication: BLOOD CHOLESTEROL ABNORMAL
     Dosage: 80 MG, 1X/DAY
  8. TOPROL XL [Concomitant]
     Dosage: HALF OF 25MG TABLET 2X/DAY

REACTIONS (2)
  - Myocardial infarction [Unknown]
  - Back disorder [Unknown]
